FAERS Safety Report 8460448-5 (Version None)
Quarter: 2012Q2

REPORT INFORMATION
  Report Type: 
  Country: None (occurrence: None)
  Receive Date: 20120622
  Receipt Date: 20120608
  Transmission Date: 20120825
  Serious: Yes (Other)
  Sender: FDA-Public Use
  Company Number: CHPA2012US012628

PATIENT
  Sex: Male

DRUGS (1)
  1. NODOZ [Suspect]
     Indication: PROPHYLAXIS
     Dosage: 2-3 DF, QD
     Route: 048
     Dates: start: 20090101

REACTIONS (8)
  - INCORRECT DRUG ADMINISTRATION DURATION [None]
  - LIGAMENT SPRAIN [None]
  - FALL [None]
  - OFF LABEL USE [None]
  - INCORRECT DOSE ADMINISTERED [None]
  - WRIST FRACTURE [None]
  - HEAD INJURY [None]
  - THERAPEUTIC RESPONSE UNEXPECTED [None]
